FAERS Safety Report 21026861 (Version 1)
Quarter: 2022Q2

REPORT INFORMATION
  Report Type: Other
  Country: DE (occurrence: DE)
  Receive Date: 20220630
  Receipt Date: 20220630
  Transmission Date: 20220721
  Serious: Yes (Other)
  Sender: FDA-Public Use
  Company Number: DE-ROCHE-3100843

PATIENT
  Age: 21 Year
  Sex: Female

DRUGS (4)
  1. RITUXIMAB [Suspect]
     Active Substance: RITUXIMAB
     Indication: Ovarian germ cell teratoma
     Dosage: IN WEEK 3 AND IN WEEK 7
     Route: 065
  2. METHYLPREDNISOLONE [Suspect]
     Active Substance: METHYLPREDNISOLONE
     Indication: Ovarian germ cell teratoma
     Dosage: OVER THE FIRST 5 DAYS
     Route: 042
  3. PREDNISOLONE [Suspect]
     Active Substance: PREDNISOLONE
     Indication: Ovarian germ cell teratoma
     Dosage: SLOWLY TAPERED TO 7,5 MG/DAYS MAINTENANCE DOSE
     Route: 048
  4. BORTEZOMIB [Suspect]
     Active Substance: BORTEZOMIB
     Indication: Ovarian germ cell teratoma
     Dosage: 2 CYCLES. ADMINISTERED ON DAYS 1, 4, 8, AND 11; CONDUCTED IN MONTH 4 AND MONTH 6 WITH A PROLONGED PA
     Route: 065

REACTIONS (2)
  - Septic shock [Unknown]
  - Off label use [Unknown]
